FAERS Safety Report 5012816-1 (Version None)
Quarter: 2006Q2

REPORT INFORMATION
  Report Type: 
  Country: None (occurrence: None)
  Receive Date: 20060530
  Receipt Date: 20060327
  Transmission Date: 20061013
  Serious: No
  Sender: FDA-Public Use
  Company Number: US-BRISTOL-MYERS SQUIBB COMPANY-13329941

PATIENT
  Sex: Female

DRUGS (3)
  1. ERBITUX [Suspect]
     Indication: COLON CANCER
  2. XELODA [Concomitant]
  3. OXALIPLATIN [Concomitant]

REACTIONS (1)
  - CATHETER RELATED COMPLICATION [None]
